FAERS Safety Report 17573559 (Version 1)
Quarter: 2020Q1

REPORT INFORMATION
  Report Type: Spontaneous
  Country: US (occurrence: US)
  Receive Date: 20200323
  Receipt Date: 20200323
  Transmission Date: 20200409
  Serious: Yes (Other)
  Sender: FDA-Public Use
  Company Number: US-OCULAR THERAPEUTIX-2020OCX00001

PATIENT
  Age: 58 Year
  Sex: Female
  Weight: 79.18 kg

DRUGS (5)
  1. FERROUS FUMERATE [Concomitant]
     Active Substance: FERROUS FUMARATE
     Route: 048
  2. TRAVATAN Z [Concomitant]
     Active Substance: TRAVOPROST
     Dosage: 1 DROP BOTH EYES, 1X/DAY AT BEDTIME
     Route: 047
  3. PAROXETINE. [Concomitant]
     Active Substance: PAROXETINE
     Dosage: UNK
     Route: 048
  4. DEXTENZA [Suspect]
     Active Substance: DEXAMETHASONE
     Indication: RETINAL DETACHMENT
     Dosage: 0.04 MG INSERT, ONCE, PRESURGICALLY
     Dates: start: 20200103
  5. MEDROXYPROGESTERONE ACETATE. [Concomitant]
     Active Substance: MEDROXYPROGESTERONE ACETATE
     Route: 048

REACTIONS (4)
  - Pruritus [Recovering/Resolving]
  - Eye pain [Recovered/Resolved]
  - Anterior chamber inflammation [Unknown]
  - Photophobia [Not Recovered/Not Resolved]

NARRATIVE: CASE EVENT DATE: 20200113
